FAERS Safety Report 8625527-8 (Version None)
Quarter: 2012Q3

REPORT INFORMATION
  Report Type: 
  Country: None (occurrence: None)
  Receive Date: 20120827
  Receipt Date: 20120816
  Transmission Date: 20120928
  Serious: Yes (Other)
  Sender: FDA-Public Use
  Company Number: CA-ROCHE-1055956

PATIENT
  Sex: Female

DRUGS (6)
  1. ALVESCO [Concomitant]
  2. ZENHALE [Concomitant]
  3. PREDNISONE TAB [Concomitant]
     Dates: start: 20120318
  4. XOLAIR [Suspect]
     Dates: start: 20120228
  5. XOLAIR [Suspect]
     Indication: ASTHMA
     Route: 058
     Dates: start: 20120217
  6. SINGULAIR [Concomitant]

REACTIONS (7)
  - SINUSITIS [None]
  - MENORRHAGIA [None]
  - RHINORRHOEA [None]
  - MYALGIA [None]
  - BRONCHITIS [None]
  - ASTHMA [None]
  - PNEUMONIA [None]
